FAERS Safety Report 6673382-8 (Version None)
Quarter: 2010Q2

REPORT INFORMATION
  Report Type: 
  Country: None (occurrence: None)
  Receive Date: 20100408
  Receipt Date: 20100405
  Transmission Date: 20101027
  Serious: Yes (Death)
  Sender: FDA-Public Use
  Company Number: PHEH2010US02664

PATIENT
  Sex: Male

DRUGS (2)
  1. SANDOSTATIN LAR [Suspect]
     Indication: BRAIN NEOPLASM MALIGNANT
     Route: 030
  2. SANDOSTATIN LAR [Suspect]
     Indication: METASTASES TO BONE

REACTIONS (1)
  - DEATH [None]
